FAERS Safety Report 13676303 (Version 2)
Quarter: 2017Q3

REPORT INFORMATION
  Report Type: Spontaneous
  Country: SI (occurrence: SI)
  Receive Date: 20170622
  Receipt Date: 20170721
  Transmission Date: 20171127
  Serious: Yes (Death)
  Sender: FDA-Public Use
  Company Number: SI-AMGEN-SVNSP2017045407

PATIENT
  Sex: Male
  Weight: 78 kg

DRUGS (1)
  1. XGEVA [Suspect]
     Active Substance: DENOSUMAB
     Indication: METASTASES TO BONE
     Dosage: 120 MG, UNK
     Route: 065
     Dates: start: 20170209

REACTIONS (3)
  - Metastases to central nervous system [Fatal]
  - Overdose [Unknown]
  - Disease progression [Fatal]

NARRATIVE: CASE EVENT DATE: 2017
